FAERS Safety Report 15635198 (Version 1)
Quarter: 2018Q4

REPORT INFORMATION
  Report Type: Spontaneous
  Country: ES (occurrence: ES)
  Receive Date: 20181120
  Receipt Date: 20181120
  Transmission Date: 20190205
  Serious: Yes (Hospitalization, Other)
  Sender: FDA-Public Use
  Company Number: ES-AUROBINDO-AUR-APL-2018-055721

PATIENT
  Age: 58 Year
  Sex: Female

DRUGS (4)
  1. AIRTAL [Suspect]
     Active Substance: ACECLOFENAC
     Indication: ARTHRALGIA
     Dosage: 100 MILLIGRAM
     Route: 048
     Dates: start: 20180920, end: 20181011
  2. ASPIRIN                            /00002701/ [Suspect]
     Active Substance: ASPIRIN
     Indication: ARTHRALGIA
     Dosage: AS NECESSARY
     Route: 048
     Dates: start: 20180920, end: 20181011
  3. DELTIUS [Concomitant]
     Active Substance: CHOLECALCIFEROL
     Indication: OSTEOPOROTIC FRACTURE
     Dosage: UNK
     Route: 048
  4. IBUPROFEN. [Suspect]
     Active Substance: IBUPROFEN
     Indication: ARTHRALGIA
     Dosage: AS NECESSARY
     Route: 048
     Dates: start: 20180920, end: 20181011

REACTIONS (1)
  - Duodenal ulcer [Recovered/Resolved]

NARRATIVE: CASE EVENT DATE: 20181011
